APPROVED DRUG PRODUCT: FUROSEMIDE
Active Ingredient: FUROSEMIDE
Strength: 10MG/ML
Dosage Form/Route: INJECTABLE;INJECTION
Application: A070017 | Product #001 | TE Code: AP
Applicant: ACCORD HEALTHCARE INC
Approved: Dec 15, 1986 | RLD: No | RS: No | Type: RX